FAERS Safety Report 4464370-0 (Version None)
Quarter: 2004Q3

REPORT INFORMATION
  Report Type: 
  Country: None (occurrence: None)
  Receive Date: 20040929
  Receipt Date: 20040921
  Transmission Date: 20050211
  Serious: Yes (Other)
  Sender: FDA-Public Use
  Company Number: HQWYE136621SEP04

PATIENT
  Sex: Female

DRUGS (1)
  1. EFFEXOR XR [Suspect]
     Dosage: 37.5 MG
     Dates: start: 20021111, end: 20021202

REACTIONS (10)
  - CARDIAC DISORDER [None]
  - CARDIOMYOPATHY [None]
  - DIAPHRAGMATIC DISORDER [None]
  - DIARRHOEA [None]
  - DIFFICULTY IN WALKING [None]
  - DIZZINESS [None]
  - DYSPNOEA EXERTIONAL [None]
  - HEART RATE DECREASED [None]
  - LOSS OF CONSCIOUSNESS [None]
  - PAIN [None]
